FAERS Safety Report 14247010 (Version 2)
Quarter: 2017Q4

REPORT INFORMATION
  Report Type: Spontaneous
  Country: CN (occurrence: CN)
  Receive Date: 20171204
  Receipt Date: 20171222
  Transmission Date: 20180321
  Serious: Yes (Other)
  Sender: FDA-Public Use
  Company Number: CN-BAYER-2017-225382

PATIENT
  Age: 66 Year
  Sex: Male

DRUGS (2)
  1. STIVARGA [Suspect]
     Active Substance: REGORAFENIB
     Indication: GASTROINTESTINAL CANCER METASTATIC
     Dosage: 120 MG, QD
     Route: 048
     Dates: start: 201710
  2. STIVARGA [Suspect]
     Active Substance: REGORAFENIB
     Indication: METASTASES TO LIVER
     Dosage: 160 MG, QD
     Dates: start: 201708, end: 2017

REACTIONS (18)
  - Incision site vesicles [None]
  - Frequent bowel movements [None]
  - Diarrhoea [None]
  - Abdominal discomfort [None]
  - Mobility decreased [None]
  - Skin fissures [None]
  - Palmar-plantar erythrodysaesthesia syndrome [None]
  - Discomfort [None]
  - Product size issue [None]
  - Skin exfoliation [None]
  - Decreased appetite [None]
  - Muscle twitching [None]
  - Skin disorder [None]
  - Product quality issue [None]
  - Suspected counterfeit product [None]
  - Post procedural discharge [None]
  - Asthenia [None]
  - Blister [None]

NARRATIVE: CASE EVENT DATE: 2017
